FAERS Safety Report 20049740 (Version 1)
Quarter: 2021Q4

REPORT INFORMATION
  Report Type: Spontaneous
  Country: US (occurrence: US)
  Receive Date: 20211109
  Receipt Date: 20211109
  Transmission Date: 20220303
  Serious: No
  Sender: FDA-Public Use
  Company Number: US-TAKEDA-2021TUS068893

PATIENT
  Sex: Female
  Weight: 52 kg

DRUGS (2)
  1. COLCRYS [Suspect]
     Active Substance: COLCHICINE
     Indication: Behcet^s syndrome
     Dosage: 0.6 MILLIGRAM
     Route: 048
     Dates: end: 202102
  2. COLCRYS [Suspect]
     Active Substance: COLCHICINE
     Indication: Behcet^s syndrome
     Dosage: 0.6 MILLIGRAM, QD
     Route: 048

REACTIONS (4)
  - Illness [Unknown]
  - Therapeutic product effect variable [Unknown]
  - Exposure during pregnancy [Unknown]
  - Diarrhoea [Unknown]
